FAERS Safety Report 6463814-2 (Version None)
Quarter: 2009Q4

REPORT INFORMATION
  Report Type: 
  Country: None (occurrence: None)
  Receive Date: 20091201
  Receipt Date: 20091117
  Transmission Date: 20100525
  Serious: Yes (Other)
  Sender: FDA-Public Use
  Company Number: IE-CELGENEUS-229-20484-09101839

PATIENT
  Age: 39 Year
  Sex: Female

DRUGS (7)
  1. INNOHEP [Suspect]
     Dosage: 175 IU/KG
     Route: 058
  2. INNOHEP [Suspect]
     Indication: DEEP VEIN THROMBOSIS
     Dosage: 175 IU/KG
     Route: 058
  3. INNOHEP [Suspect]
     Dosage: 175 IU/KG
     Route: 058
  4. WARFARIN SODIUM [Concomitant]
     Indication: DEEP VEIN THROMBOSIS
     Route: 065
  5. TAXOL [Concomitant]
     Route: 065
  6. CARBOPLATIN [Concomitant]
     Route: 065
  7. ENOXAPARIN SODIUM [Concomitant]
     Indication: DEEP VEIN THROMBOSIS
     Route: 065

REACTIONS (1)
  - DEEP VEIN THROMBOSIS [None]
